FAERS Safety Report 23160728 (Version 1)
Quarter: 2023Q4

REPORT INFORMATION
  Report Type: Spontaneous
  Country: US (occurrence: US)
  Receive Date: 20231108
  Receipt Date: 20231108
  Transmission Date: 20240109
  Serious: No
  Sender: FDA-Public Use
  Company Number: US-SA-SAC20231031001621

PATIENT
  Age: 43 Year
  Sex: Female
  Weight: 99.8 kg

DRUGS (10)
  1. DUPIXENT [Suspect]
     Active Substance: DUPILUMAB
     Indication: Dermatitis atopic
     Dosage: 300 MG, QOW
     Route: 058
  2. ALBUTEROL SULFATE [Concomitant]
     Active Substance: ALBUTEROL SULFATE
  3. FLUTICASONE [Concomitant]
     Active Substance: FLUTICASONE
  4. TRELEGY ELLIPTA [Concomitant]
     Active Substance: FLUTICASONE FUROATE\UMECLIDINIUM BROMIDE\VILANTEROL TRIFENATATE
  5. CLOBETASOL [Concomitant]
     Active Substance: CLOBETASOL
  6. KETOCONAZOLE [Concomitant]
     Active Substance: KETOCONAZOLE
  7. TEMAZEPAM [Concomitant]
     Active Substance: TEMAZEPAM
  8. BUPROPION [Concomitant]
     Active Substance: BUPROPION
  9. LAMOTRIGINE [Concomitant]
     Active Substance: LAMOTRIGINE
  10. FLOVENT HFA [Concomitant]
     Active Substance: FLUTICASONE PROPIONATE

REACTIONS (1)
  - Rash [Not Recovered/Not Resolved]
